APPROVED DRUG PRODUCT: CARFILZOMIB
Active Ingredient: CARFILZOMIB
Strength: 60MG/VIAL
Dosage Form/Route: POWDER;INTRAVENOUS
Application: A209425 | Product #001
Applicant: APOTEX INC
Approved: Mar 16, 2020 | RLD: No | RS: No | Type: DISCN